FAERS Safety Report 13955429 (Version 1)
Quarter: 2017Q3

REPORT INFORMATION
  Report Type: Spontaneous
  Country: GB (occurrence: GB)
  Receive Date: 20170911
  Receipt Date: 20170911
  Transmission Date: 20171128
  Serious: Yes (Disabling)
  Sender: FDA-Public Use
  Company Number: GB-DRREDDYS-GER/UKI/17/0093173

PATIENT
  Age: 33 Year
  Sex: Female

DRUGS (2)
  1. SERTRALINE [Suspect]
     Active Substance: SERTRALINE HYDROCHLORIDE
     Indication: DEPRESSION
     Dosage: VARIABLE - BETWEEN 0-150MG DAILY
     Route: 048
     Dates: start: 200109, end: 20170816
  2. FLUOXETINE [Suspect]
     Active Substance: FLUOXETINE HYDROCHLORIDE
     Indication: PRODUCT USED FOR UNKNOWN INDICATION
     Dosage: GRADUAL REDUCTION FROM 20MG DAILY TO 0
     Route: 048
     Dates: start: 201507, end: 201509

REACTIONS (8)
  - Withdrawal syndrome [Not Recovered/Not Resolved]
  - Paraesthesia [Unknown]
  - Condition aggravated [Unknown]
  - Neurological symptom [Unknown]
  - Headache [Unknown]
  - Suicidal ideation [Unknown]
  - Dependence [Unknown]
  - Confusional state [Unknown]
